FAERS Safety Report 15659420 (Version 1)
Quarter: 2018Q4

REPORT INFORMATION
  Report Type: Report from Study
  Country: None (occurrence: IT)
  Receive Date: 20181127
  Receipt Date: 20181127
  Transmission Date: 20190205
  Serious: Yes (Other)
  Sender: FDA-Public Use
  Company Number: IT-ABBVIE-18S-083-2566736-00

PATIENT
  Age: 50 Year
  Sex: Female

DRUGS (1)
  1. DUODOPA [Suspect]
     Active Substance: CARBIDOPA\LEVODOPA
     Indication: PARKINSON^S DISEASE
     Dosage: MD 8(+3)??CR 3,5??ED 3
     Route: 050
     Dates: start: 20171113

REACTIONS (3)
  - Lung disorder [Unknown]
  - Liver injury [Unknown]
  - Uterine disorder [Unknown]

NARRATIVE: CASE EVENT DATE: 201811
